FAERS Safety Report 26186614 (Version 1)
Quarter: 2025Q4

REPORT INFORMATION
  Report Type: Spontaneous
  Country: US (occurrence: US)
  Receive Date: 20251222
  Receipt Date: 20251222
  Transmission Date: 20260118
  Serious: No
  Sender: SANOFI AVENTIS
  Company Number: US-SA-2025SA380124

PATIENT
  Age: 25 Year
  Sex: Male

DRUGS (5)
  1. DUPIXENT [Suspect]
     Active Substance: DUPILUMAB
     Indication: Asthma
     Dosage: 300MG/2ML OTHER
     Route: 058
     Dates: start: 20250627
  2. OMEPRAZOLE [Concomitant]
     Active Substance: OMEPRAZOLE
  3. MONTELUKAST [Concomitant]
     Active Substance: MONTELUKAST
  4. IPRATROPIUM [Concomitant]
     Active Substance: IPRATROPIUM
  5. FLUTICASONE [Concomitant]
     Active Substance: FLUTICASONE

REACTIONS (1)
  - Metaplasia [Unknown]

NARRATIVE: CASE EVENT DATE: 20251204
